FAERS Safety Report 5115811-7 (Version None)
Quarter: 2006Q3

REPORT INFORMATION
  Report Type: 
  Country: None (occurrence: None)
  Receive Date: 20060927
  Receipt Date: 20060913
  Transmission Date: 20061208
  Serious: Yes (Hospitalization)
  Sender: FDA-Public Use
  Company Number: FR-JNJFOC-20060902736

PATIENT
  Sex: Female

DRUGS (4)
  1. IXPRIM [Suspect]
     Indication: ARTHRALGIA
     Route: 048
  2. HYPERIUM [Concomitant]
     Indication: HYPERTENSION
     Route: 048
  3. TOFRANIL [Concomitant]
     Route: 048
  4. MEPRONIZINE [Concomitant]
     Route: 048

REACTIONS (3)
  - ANGLE CLOSURE GLAUCOMA [None]
  - HEADACHE [None]
  - NAUSEA [None]
